FAERS Safety Report 7046709-5 (Version None)
Quarter: 2010Q4

REPORT INFORMATION
  Report Type: 
  Country: None (occurrence: None)
  Receive Date: 20101015
  Receipt Date: 20101001
  Transmission Date: 20110411
  Serious: Yes (Hospitalization)
  Sender: FDA-Public Use
  Company Number: FR-JNJFOC-20101003287

PATIENT
  Sex: Female

DRUGS (7)
  1. ZALDIAR [Suspect]
     Indication: PAIN
     Route: 048
  2. REMICADE [Suspect]
     Indication: CROHN'S DISEASE
     Route: 041
  3. REMICADE [Suspect]
     Indication: SPONDYLOARTHROPATHY
     Route: 041
  4. CRESTOR [Suspect]
     Indication: DYSLIPIDAEMIA
     Route: 048
  5. LEVOTHYROXINE SODIUM [Suspect]
     Indication: HYPOTHYROIDISM
     Route: 048
  6. BISOPROLOL [Suspect]
     Indication: CARDIAC FAILURE
     Route: 048
  7. EUPANTOL [Suspect]
     Indication: PRODUCT USED FOR UNKNOWN INDICATION
     Route: 048

REACTIONS (1)
  - THROMBOTIC THROMBOCYTOPENIC PURPURA [None]
